FAERS Safety Report 8409151-8 (Version None)
Quarter: 2012Q2

REPORT INFORMATION
  Report Type: 
  Country: None (occurrence: None)
  Receive Date: 20120604
  Receipt Date: 20120525
  Transmission Date: 20120825
  Serious: Yes (Other)
  Sender: FDA-Public Use
  Company Number: US-ABBOTT-12P-163-0928910-00

PATIENT
  Sex: Female

DRUGS (4)
  1. FIORICET [Concomitant]
     Indication: MIGRAINE
  2. MULTI-VITAMINS [Concomitant]
     Indication: PRODUCT USED FOR UNKNOWN INDICATION
  3. PROMETRIUM [Suspect]
     Indication: PRODUCT USED FOR UNKNOWN INDICATION
  4. LUPRON DEPOT [Suspect]
     Indication: ENDOMETRIOSIS

REACTIONS (2)
  - PROTEINURIA [None]
  - PRE-ECLAMPSIA [None]
